FAERS Safety Report 8887860 (Version 1)
Quarter: 2012Q4

REPORT INFORMATION
  Report Type: Spontaneous
  Country: US (occurrence: None)
  Receive Date: 20121101
  Receipt Date: 20121101
  Transmission Date: 20130627
  Serious: No
  Sender: FDA-Public Use
  Company Number: None

PATIENT
  Age: 63 Year
  Sex: Male
  Weight: 88.6 kg

DRUGS (1)
  1. TERAZOSIN [Suspect]
     Indication: BENIGN PROSTATIC HYPERTROPHY
     Route: 048
     Dates: start: 20120118, end: 20121012

REACTIONS (2)
  - Hypotension [None]
  - Presyncope [None]
